FAERS Safety Report 7900651-3 (Version None)
Quarter: 2011Q4

REPORT INFORMATION
  Report Type: 
  Country: None (occurrence: None)
  Receive Date: 20111104
  Receipt Date: 20111021
  Transmission Date: 20120403
  Serious: Yes (Hospitalization, Other)
  Sender: FDA-Public Use
  Company Number: EU-2011-10199

PATIENT
  Age: 31 Year
  Sex: Female

DRUGS (3)
  1. SAMSCA [Suspect]
     Indication: HYPONATRAEMIA
     Dosage: 15 MG MILLIGRAM(S), 7.5 MG MILLIGRAM(S), SINGLE, ORAL
     Route: 048
     Dates: start: 20111014, end: 20111014
  2. SAMSCA [Suspect]
     Indication: HYPONATRAEMIA
     Dosage: 15 MG MILLIGRAM(S), 7.5 MG MILLIGRAM(S), SINGLE, ORAL
     Route: 048
     Dates: start: 20111016, end: 20111016
  3. HYPERTONIC SOLUTIONS [Suspect]
     Indication: HYPONATRAEMIA
     Dates: start: 20110101

REACTIONS (5)
  - WRONG TECHNIQUE IN DRUG USAGE PROCESS [None]
  - MALAISE [None]
  - VOMITING [None]
  - POLYURIA [None]
  - HYPONATRAEMIC ENCEPHALOPATHY [None]
